FAERS Safety Report 13417717 (Version 3)
Quarter: 2017Q2

REPORT INFORMATION
  Report Type: Report from Study
  Country: ZA (occurrence: ZA)
  Receive Date: 20170406
  Receipt Date: 20170615
  Transmission Date: 20170830
  Serious: Yes (Hospitalization, Other)
  Sender: FDA-Public Use
  Company Number: PHHY2017ZA050178

PATIENT
  Age: 63 Year
  Sex: Female
  Weight: 62 kg

DRUGS (4)
  1. DABRAFENIB [Suspect]
     Active Substance: DABRAFENIB
     Dosage: DOSE REDUCED
     Route: 048
  2. TRAMETINIB [Suspect]
     Active Substance: TRAMETINIB
     Dosage: DOSE REDUCED
     Route: 048
  3. DABRAFENIB [Suspect]
     Active Substance: DABRAFENIB
     Indication: METASTATIC MALIGNANT MELANOMA
     Dosage: 150 MG, BID
     Route: 048
     Dates: start: 20160510
  4. TRAMETINIB [Suspect]
     Active Substance: TRAMETINIB
     Indication: METASTATIC MALIGNANT MELANOMA
     Dosage: 1 MG, QD
     Route: 048
     Dates: start: 20160510

REACTIONS (8)
  - Metastases to lymph nodes [Recovered/Resolved]
  - Hypotension [Recovered/Resolved]
  - Arteriosclerosis [Recovered/Resolved]
  - Tachycardia [Recovered/Resolved]
  - Lymphadenopathy [Recovered/Resolved]
  - Seroma [Recovered/Resolved]
  - Pyrexia [Recovered/Resolved]
  - Chills [Recovered/Resolved]

NARRATIVE: CASE EVENT DATE: 20161205
